FAERS Safety Report 6936099-8 (Version None)
Quarter: 2010Q3

REPORT INFORMATION
  Report Type: 
  Country: None (occurrence: None)
  Receive Date: 20100823
  Receipt Date: 20100812
  Transmission Date: 20110219
  Serious: Yes (Hospitalization)
  Sender: FDA-Public Use
  Company Number: FR-NOVOPROD-302127

PATIENT
  Age: 10 Year
  Sex: Male
  Weight: 28 kg

DRUGS (3)
  1. NOVOSEVEN [Suspect]
     Indication: PROPHYLAXIS
     Dosage: 133.3 UG/KG, UNK
     Dates: start: 20071016, end: 20080326
  2. NOVOSEVEN [Suspect]
     Indication: HAEMOPHILIA
     Dosage: 3.6 MG/ 48 HRS
     Route: 042
     Dates: start: 20071214
  3. NOVOSEVEN [Suspect]
     Dosage: 3.6 MG/ 48 HRS
     Route: 042

REACTIONS (1)
  - CANDIDA SEPSIS [None]
